FAERS Safety Report 5654959-5 (Version None)
Quarter: 2008Q1

REPORT INFORMATION
  Report Type: 
  Country: None (occurrence: None)
  Receive Date: 20080307
  Receipt Date: 20071015
  Transmission Date: 20080703
  Serious: No
  Sender: FDA-Public Use
  Company Number: A0683928A

PATIENT
  Age: 80 Year
  Sex: Female

DRUGS (3)
  1. REQUIP [Suspect]
     Indication: NEUROPATHY PERIPHERAL
     Dosage: .25MG PER DAY
     Route: 048
     Dates: start: 20070531, end: 20070726
  2. VITAMINS [Concomitant]
  3. FOSAMAX [Concomitant]

REACTIONS (5)
  - DRUG INEFFECTIVE [None]
  - FATIGUE [None]
  - HEADACHE [None]
  - OEDEMA PERIPHERAL [None]
  - SOMNOLENCE [None]
